FAERS Safety Report 5126693-1 (Version None)
Quarter: 2006Q4

REPORT INFORMATION
  Report Type: 
  Country: None (occurrence: None)
  Receive Date: 20061012
  Receipt Date: 20061012
  Transmission Date: 20070319
  Serious: Yes (Hospitalization)
  Sender: FDA-Public Use
  Company Number: None

PATIENT
  Age: 88 Year
  Sex: Male
  Weight: 64 kg

DRUGS (1)
  1. IRON DEXTRAN [Suspect]
     Indication: IRON DEFICIENCY ANAEMIA
     Dosage: 25MG, 25MG TEST, INTRAVEN
     Route: 042
     Dates: start: 20060808, end: 20060808

REACTIONS (3)
  - DIZZINESS [None]
  - DYSPNOEA [None]
  - FLUSHING [None]
